FAERS Safety Report 4347431-6 (Version None)
Quarter: 2004Q2

REPORT INFORMATION
  Report Type: 
  Country: None (occurrence: None)
  Receive Date: 20040422
  Receipt Date: 20040406
  Transmission Date: 20050107
  Serious: No
  Sender: FDA-Public Use
  Company Number: 2004SE01953

PATIENT
  Sex: Female

DRUGS (1)
  1. MARCAINE [Suspect]
     Indication: ANAESTHESIA

REACTIONS (1)
  - MENINGITIS [None]
